FAERS Safety Report 5305538-0 (Version None)
Quarter: 2007Q2

REPORT INFORMATION
  Report Type: 
  Country: None (occurrence: None)
  Receive Date: 20070424
  Receipt Date: 20070307
  Transmission Date: 20071010
  Serious: No
  Sender: FDA-Public Use
  Company Number: US-GLAXOSMITHKLINE-A0632582A

PATIENT
  Age: 45 Year
  Sex: Female

DRUGS (5)
  1. FLOVENT [Suspect]
     Indication: ASTHMA
     Dosage: 44MCG TWICE PER DAY
     Route: 055
     Dates: start: 19900101
  2. SEREVENT [Suspect]
     Indication: ASTHMA
     Dosage: 1PUFF PER DAY
     Route: 055
     Dates: start: 19900101
  3. VENTOLIN [Suspect]
     Indication: ASTHMA
     Route: 055
     Dates: start: 19900101
  4. SINGULAIR [Concomitant]
  5. ALLEGRA [Concomitant]

REACTIONS (1)
  - TOOTH DISCOLOURATION [None]
